FAERS Safety Report 19108125 (Version 1)
Quarter: 2021Q2

REPORT INFORMATION
  Report Type: Spontaneous
  Country: US (occurrence: US)
  Receive Date: 20210408
  Receipt Date: 20210408
  Transmission Date: 20210717
  Serious: Yes (Hospitalization)
  Sender: FDA-Public Use
  Company Number: US-HIKMA PHARMACEUTICALS USA INC.-US-H14001-21-01714

PATIENT
  Age: 25 Year
  Sex: Male

DRUGS (3)
  1. NALOXONE [Concomitant]
     Active Substance: NALOXONE
     Indication: PRODUCT USED FOR UNKNOWN INDICATION
  2. FENTANYL. [Suspect]
     Active Substance: FENTANYL
     Indication: PRODUCT USED FOR UNKNOWN INDICATION
     Dosage: UNKNOWN
     Route: 065
  3. NALOXONE [Concomitant]
     Active Substance: NALOXONE
     Route: 042

REACTIONS (6)
  - Mydriasis [Unknown]
  - Respiratory depression [Unknown]
  - Unresponsive to stimuli [Unknown]
  - Malaise [Unknown]
  - Somnolence [Unknown]
  - Toxicity to various agents [Unknown]
